FAERS Safety Report 6021126-5 (Version None)
Quarter: 2008Q4

REPORT INFORMATION
  Report Type: 
  Country: None (occurrence: None)
  Receive Date: 20081224
  Receipt Date: 20081224
  Transmission Date: 20090506
  Serious: Yes (Life-Threatening, Other)
  Sender: FDA-Public Use
  Company Number: None

PATIENT
  Sex: Female
  Weight: 56.6996 kg

DRUGS (2)
  1. CLONAZEPAM [Suspect]
     Indication: ANXIETY
     Dosage: 1/2 TO 2 TABS -0.5 TO 2 MG DAILY PO
     Route: 048
  2. CLONAZEPAM [Suspect]
     Indication: INSOMNIA
     Dosage: 1/2 TO 2 TABS -0.5 TO 2 MG DAILY PO
     Route: 048

REACTIONS (7)
  - ANGER [None]
  - ANXIETY [None]
  - CONDITION AGGRAVATED [None]
  - DRUG DEPENDENCE [None]
  - DRUG TOLERANCE [None]
  - FEELING OF DESPAIR [None]
  - SUICIDAL IDEATION [None]
